FAERS Safety Report 6821228-7 (Version None)
Quarter: 2010Q3

REPORT INFORMATION
  Report Type: 
  Country: None (occurrence: None)
  Receive Date: 20100707
  Receipt Date: 20080501
  Transmission Date: 20110219
  Serious: No
  Sender: FDA-Public Use
  Company Number: US-PFIZER INC-2008034759

PATIENT
  Sex: Female

DRUGS (2)
  1. ZOLOFT [Suspect]
     Indication: ANXIETY
     Dates: start: 20080401
  2. ZOLOFT [Suspect]
     Indication: DEPRESSION

REACTIONS (3)
  - ANXIETY [None]
  - DRY MOUTH [None]
  - UNEVALUABLE EVENT [None]
